FAERS Safety Report 9325658 (Version 1)
Quarter: 2013Q2

REPORT INFORMATION
  Report Type: Spontaneous
  Country: NL (occurrence: NL)
  Receive Date: 20130604
  Receipt Date: 20130604
  Transmission Date: 20140414
  Serious: Yes (Life-Threatening, Hospitalization)
  Sender: FDA-Public Use
  Company Number: NL-TEVA-408128ISR

PATIENT
  Sex: Male
  Weight: 35 kg

DRUGS (1)
  1. AMOXICILLIN [Suspect]
     Indication: PNEUMONIA
     Dosage: 1500 MILLIGRAM DAILY; 3 TIMES DAILY ONE PIECE
     Route: 048
     Dates: start: 2003, end: 2003

REACTIONS (2)
  - Stevens-Johnson syndrome [Recovered/Resolved]
  - Herpes simplex [Unknown]
